FAERS Safety Report 6148576-0 (Version None)
Quarter: 2009Q2

REPORT INFORMATION
  Report Type: 
  Country: None (occurrence: None)
  Receive Date: 20090406
  Receipt Date: 20090406
  Transmission Date: 20091009
  Serious: Yes (Hospitalization, Other)
  Sender: FDA-Public Use
  Company Number: None

PATIENT
  Age: 40 Year
  Sex: Female
  Weight: 56.6996 kg

DRUGS (2)
  1. BUPROPION XL 300 MG WATSON [Suspect]
     Indication: MAJOR DEPRESSION
     Dosage: 300 MG ONCE DAILY PO
     Route: 048
     Dates: start: 20090310, end: 20090403
  2. BUPROPION XL 300 MG WATSON [Suspect]
     Indication: POST-TRAUMATIC STRESS DISORDER
     Dosage: 300 MG ONCE DAILY PO
     Route: 048
     Dates: start: 20090310, end: 20090403

REACTIONS (10)
  - CHEST DISCOMFORT [None]
  - DIZZINESS [None]
  - DRUG INEFFECTIVE [None]
  - DYSPHAGIA [None]
  - DYSPNOEA [None]
  - FATIGUE [None]
  - HEADACHE [None]
  - INSOMNIA [None]
  - PRODUCT QUALITY ISSUE [None]
  - TREMOR [None]
